FAERS Safety Report 6493396-0 (Version None)
Quarter: 2009Q4

REPORT INFORMATION
  Report Type: 
  Country: None (occurrence: None)
  Receive Date: 20091214
  Receipt Date: 20091201
  Transmission Date: 20100525
  Serious: Yes (Death)
  Sender: FDA-Public Use
  Company Number: DE-GENENTECH-295469

PATIENT
  Age: 73 Year
  Sex: Male
  Weight: 80 kg

DRUGS (2)
  1. MABTHERA [Suspect]
     Indication: DRUG USE FOR UNKNOWN INDICATION
     Dosage: 700 UNK, UNK
     Route: 042
     Dates: start: 20090902
  2. BENDAMUSTINE [Suspect]
     Indication: DRUG USE FOR UNKNOWN INDICATION
     Dosage: 170 UNK, UNK
     Route: 042
     Dates: start: 20090902

REACTIONS (3)
  - INFECTION [None]
  - PYREXIA [None]
  - URINARY INCONTINENCE [None]
